FAERS Safety Report 25728611 (Version 4)
Quarter: 2025Q3

REPORT INFORMATION
  Report Type: Spontaneous
  Country: CA (occurrence: CA)
  Receive Date: 20250826
  Receipt Date: 20250926
  Transmission Date: 20251021
  Serious: Yes (Hospitalization, Other)
  Sender: INCYTE
  Company Number: CA-002147023-NVSC2025CA087811

PATIENT
  Age: 2 Year

DRUGS (11)
  1. RUXOLITINIB [Suspect]
     Active Substance: RUXOLITINIB
     Indication: Still^s disease
     Dosage: 2.5 MG, BID (STRENGTH 5 MG) (IF TABLET IS ONLY OPTION, AND IF IT CAN BE CRUSHED OR DISSOLVED); IF LI
     Route: 065
  2. RUXOLITINIB [Suspect]
     Active Substance: RUXOLITINIB
     Indication: Haemophagocytic lymphohistiocytosis
  3. ILARIS [Suspect]
     Active Substance: CANAKINUMAB
     Indication: Still^s disease
     Dosage: 50 MG, Q4W
  4. ILARIS [Suspect]
     Active Substance: CANAKINUMAB
     Indication: Haemophagocytic lymphohistiocytosis
     Dosage: 100 MG, QMO
  5. ILARIS [Suspect]
     Active Substance: CANAKINUMAB
  6. ILARIS [Suspect]
     Active Substance: CANAKINUMAB
  7. MYCOPHENOLATE MOFETIL [Concomitant]
     Active Substance: MYCOPHENOLATE MOFETIL
     Indication: Still^s disease
     Dosage: 150 MG, BID
     Route: 065
  8. MYCOPHENOLATE MOFETIL [Concomitant]
     Active Substance: MYCOPHENOLATE MOFETIL
     Dosage: 150 MG, BID
     Route: 065
  9. PREDNISONE [Concomitant]
     Active Substance: PREDNISONE
     Indication: Still^s disease
     Dosage: 17.5 MG, QD
     Route: 065
  10. PREDNISONE [Concomitant]
     Active Substance: PREDNISONE
     Dosage: 1 MG, QD
     Route: 065
  11. PREDNISONE [Concomitant]
     Active Substance: PREDNISONE
     Route: 065

REACTIONS (11)
  - Infection [Recovered/Resolved]
  - Otitis media acute [Recovered/Resolved]
  - Inflammation [Unknown]
  - Parainfluenzae virus infection [Recovered/Resolved]
  - Condition aggravated [Recovering/Resolving]
  - Still^s disease [Recovering/Resolving]
  - Dysphagia [Unknown]
  - Interstitial lung disease [Not Recovered/Not Resolved]
  - Haemophagocytic lymphohistiocytosis [Recovered/Resolved]
  - Disease recurrence [Recovered/Resolved]
  - Rhinovirus infection [Recovered/Resolved]
